FAERS Safety Report 18000322 (Version 1)
Quarter: 2020Q3

REPORT INFORMATION
  Report Type: Spontaneous
  Country: CA (occurrence: CA)
  Receive Date: 20200709
  Receipt Date: 20200709
  Transmission Date: 20201103
  Serious: Yes (Other)
  Sender: FDA-Public Use
  Company Number: CA-AKORN PHARMACEUTICALS-2020AKN00875

PATIENT
  Age: 14 Year
  Sex: Male

DRUGS (6)
  1. CLINDAMYCIN. [Suspect]
     Active Substance: CLINDAMYCIN
     Dosage: 380 MG, ONCE
     Route: 042
  2. DESOXIMETASONE. [Concomitant]
     Active Substance: DESOXIMETASONE
     Dosage: UNK UNK, 1X/DAY
     Route: 061
  3. MOISTURIZER [Concomitant]
     Active Substance: UNSPECIFIED INGREDIENT
     Dosage: UNK UNK, 1X/DAY
     Route: 061
  4. CLINDAMYCIN. [Suspect]
     Active Substance: CLINDAMYCIN
     Dosage: UNK, ONCE
     Route: 042
  5. TACROLIMUS. [Suspect]
     Active Substance: TACROLIMUS
     Indication: DERMATITIS ATOPIC
     Dosage: UNK, 1X/DAY
     Route: 061
  6. CLINDAMYCIN. [Suspect]
     Active Substance: CLINDAMYCIN
     Indication: ACNE
     Dosage: 1 OR 2 APPLICATIONS
     Route: 061

REACTIONS (1)
  - Anaphylactic reaction [Recovered/Resolved]
